FAERS Safety Report 7034591-1 (Version None)
Quarter: 2010Q4

REPORT INFORMATION
  Report Type: 
  Country: None (occurrence: None)
  Receive Date: 20101008
  Receipt Date: 20100928
  Transmission Date: 20110411
  Serious: Yes (Other)
  Sender: FDA-Public Use
  Company Number: US-JNJFOC-20100908869

PATIENT
  Age: 62 Year
  Sex: Female

DRUGS (12)
  1. INFLIXIMAB, RECOMBINANT [Suspect]
     Indication: PSORIATIC ARTHROPATHY
     Route: 042
  2. INFLIXIMAB, RECOMBINANT [Suspect]
     Indication: PSORIASIS
     Route: 042
  3. MERCAPTOPURINE [Suspect]
     Indication: CROHN'S DISEASE
     Dosage: VARYING FREQUENCIES
  4. MERCAPTOPURINE [Suspect]
  5. MERCAPTOPURINE [Suspect]
  6. MERCAPTOPURINE [Suspect]
     Indication: ANAL FISTULA
     Dosage: VARYING FREQUENCIES
  7. MERCAPTOPURINE [Suspect]
  8. MERCAPTOPURINE [Suspect]
  9. ALLOPURINOL [Suspect]
     Indication: PRODUCT USED FOR UNKNOWN INDICATION
     Dosage: BIWEEKLY
  10. ALLOPURINOL [Suspect]
     Dosage: VARYING FREQUENCIES
  11. METHOTREXATE [Concomitant]
     Indication: PSORIATIC ARTHROPATHY
  12. METHOTREXATE [Concomitant]
     Indication: PSORIASIS

REACTIONS (2)
  - ACUTE MYELOID LEUKAEMIA [None]
  - LEUKOPENIA [None]
